FAERS Safety Report 6924434-6 (Version None)
Quarter: 2010Q3

REPORT INFORMATION
  Report Type: 
  Country: None (occurrence: None)
  Receive Date: 20100811
  Receipt Date: 20100727
  Transmission Date: 20110219
  Serious: Yes (Hospitalization, Other)
  Sender: FDA-Public Use
  Company Number: 2010P1000399

PATIENT
  Age: 46 Year
  Sex: Male
  Weight: 108.8633 kg

DRUGS (5)
  1. FENTANYL [Suspect]
     Indication: BACK PAIN
     Dosage: 75 MCG/HR Q72H; TDER
     Route: 062
     Dates: start: 20100701, end: 20100701
  2. FENTANYL [Suspect]
     Indication: BACK PAIN
     Dosage: 75 MCG/HR; Q72H; TDER
     Route: 062
     Dates: start: 20100701
  3. PHENERGAN [Concomitant]
  4. LIDOCAINE AND MYLANTA MIXED [Concomitant]
  5. PREV MEDS [Concomitant]

REACTIONS (8)
  - BLOOD GLUCOSE INCREASED [None]
  - COLD SWEAT [None]
  - DRUG INEFFECTIVE [None]
  - DRUG WITHDRAWAL SYNDROME [None]
  - HEPATIC CIRRHOSIS [None]
  - INTESTINAL FUNCTIONAL DISORDER [None]
  - LOSS OF CONSCIOUSNESS [None]
  - MUSCLE TWITCHING [None]
